FAERS Safety Report 10621850 (Version 1)
Quarter: 2014Q4

REPORT INFORMATION
  Report Type: Spontaneous
  Country: US (occurrence: None)
  Receive Date: 20141201
  Receipt Date: 20141201
  Transmission Date: 20150529
  Serious: Yes (Other)
  Sender: FDA-Public Use
  Company Number: None

PATIENT
  Age: 48 Year
  Sex: Female

DRUGS (1)
  1. KENALOG [Suspect]
     Active Substance: TRIAMCINOLONE ACETONIDE
     Dosage: ONE?EPIDURIAL

REACTIONS (5)
  - Neurotoxicity [None]
  - Toxicity to various agents [None]
  - General physical health deterioration [None]
  - Quality of life decreased [None]
  - Off label use [None]

NARRATIVE: CASE EVENT DATE: 20110127
